FAERS Safety Report 25024563 (Version 1)
Quarter: 2025Q1

REPORT INFORMATION
  Report Type: Spontaneous
  Country: US (occurrence: US)
  Receive Date: 20250228
  Receipt Date: 20250228
  Transmission Date: 20250408
  Serious: Yes (Hospitalization, Other)
  Sender: ELI LILLY AND COMPANY
  Company Number: US-ELI_LILLY_AND_COMPANY-US202502013049

PATIENT
  Age: 30 Year

DRUGS (4)
  1. TRULICITY [Suspect]
     Active Substance: DULAGLUTIDE
     Indication: Product used for unknown indication
     Route: 065
     Dates: start: 202305, end: 202306
  2. OZEMPIC [Suspect]
     Active Substance: SEMAGLUTIDE
     Indication: Product used for unknown indication
     Route: 065
     Dates: start: 202210, end: 202302
  3. RYBELSUS [Suspect]
     Active Substance: SEMAGLUTIDE
     Indication: Product used for unknown indication
     Route: 065
     Dates: start: 202112, end: 202210
  4. VICTOZA [Suspect]
     Active Substance: LIRAGLUTIDE
     Indication: Product used for unknown indication
     Route: 065
     Dates: start: 202306, end: 202310

REACTIONS (9)
  - Functional gastrointestinal disorder [Unknown]
  - Early satiety [Unknown]
  - Abdominal distension [Unknown]
  - Constipation [Unknown]
  - Impaired gastric emptying [Unknown]
  - Dyspepsia [Unknown]
  - Cholecystitis acute [Unknown]
  - Abdominal pain upper [Unknown]
  - Abdominal pain [Unknown]
